FAERS Safety Report 6241090-3 (Version None)
Quarter: 2009Q2

REPORT INFORMATION
  Report Type: 
  Country: None (occurrence: None)
  Receive Date: 20090619
  Receipt Date: 20090619
  Transmission Date: 20091009
  Serious: Yes (Hospitalization)
  Sender: FDA-Public Use
  Company Number: None

PATIENT
  Sex: Male
  Weight: 67.5 kg

DRUGS (2)
  1. PEMETREXED [Suspect]
     Indication: PROSTATE CANCER
     Dosage: 500 MG/ M^2 Q 21 D IV
     Route: 042
     Dates: start: 20090506
  2. OXALIPLATIN [Suspect]
     Indication: PROSTATE CANCER
     Dosage: 120 MG/ M^2 Q 21 D IV
     Route: 042
     Dates: start: 20090506

REACTIONS (3)
  - ABDOMINAL PAIN [None]
  - CONDITION AGGRAVATED [None]
  - PLEURAL EFFUSION [None]
